FAERS Safety Report 4672865-X (Version None)
Quarter: 2005Q2

REPORT INFORMATION
  Report Type: 
  Country: None (occurrence: None)
  Receive Date: 20050523
  Receipt Date: 20050509
  Transmission Date: 20051028
  Serious: Yes (Death, Hospitalization)
  Sender: FDA-Public Use
  Company Number: 0500054EN0020P

PATIENT
  Age: 9 Year
  Sex: Female

DRUGS (6)
  1. ONCASPAR (PEG-L-ASPARGINASE) [Suspect]
     Indication: ACUTE LYMPHOCYTIC LEUKAEMIA
     Dosage: 2400 IU IM
     Route: 030
     Dates: start: 20040117, end: 20040117
  2. VINCRISTINE [Suspect]
     Indication: ACUTE LYMPHOCYTIC LEUKAEMIA
     Dosage: 1.44 MG Q7DAY
     Dates: start: 20040114, end: 20040128
  3. DEXAMETHASONE [Suspect]
     Indication: ACUTE LYMPHOCYTIC LEUKAEMIA
     Dosage: 3 MG QD; 6 MG QD
     Dates: start: 20040114, end: 20040114
  4. DEXAMETHASONE [Suspect]
     Indication: ACUTE LYMPHOCYTIC LEUKAEMIA
     Dosage: 3 MG QD; 6 MG QD
     Dates: start: 20040115, end: 20040128
  5. CYTARABINE [Suspect]
     Indication: ACUTE LYMPHOCYTIC LEUKAEMIA
     Dosage: 70 MG IT
     Route: 037
     Dates: start: 20040113, end: 20040113
  6. METHOTREXATE [Suspect]
     Indication: ACUTE LYMPHOCYTIC LEUKAEMIA
     Dosage: 12 MG IT
     Route: 037
     Dates: start: 20040121, end: 20040121

REACTIONS (12)
  - ANAEMIA [None]
  - ASCITES [None]
  - BLOOD ALBUMIN DECREASED [None]
  - CARDIAC ARREST [None]
  - ENDOTOXIC SHOCK [None]
  - ESCHERICHIA SEPSIS [None]
  - GENERALISED OEDEMA [None]
  - NEUTROPENIA [None]
  - PYREXIA [None]
  - TACHYCARDIA [None]
  - THROMBOCYTOPENIA [None]
  - WHITE BLOOD CELL COUNT DECREASED [None]
